FAERS Safety Report 23453232 (Version 1)
Quarter: 2024Q1

REPORT INFORMATION
  Report Type: Spontaneous
  Country: IT (occurrence: IT)
  Receive Date: 20240129
  Receipt Date: 20240129
  Transmission Date: 20240409
  Serious: Yes (Other)
  Sender: FDA-Public Use
  Company Number: None

PATIENT
  Age: 84 Year
  Sex: Female
  Weight: 57 kg

DRUGS (1)
  1. OPDIVO [Suspect]
     Active Substance: NIVOLUMAB
     Indication: Immunochemotherapy
     Route: 042
     Dates: start: 20240116, end: 20240116

REACTIONS (6)
  - Hypoxia [Recovered/Resolved]
  - Pain in extremity [Recovered/Resolved]
  - Bronchospasm [Recovered/Resolved]
  - Laryngospasm [Recovered/Resolved]
  - Back pain [Recovered/Resolved]
  - Diastolic hypotension [Recovered/Resolved]

NARRATIVE: CASE EVENT DATE: 20240116
